FAERS Safety Report 5193567-X (Version None)
Quarter: 2006Q4

REPORT INFORMATION
  Report Type: 
  Country: None (occurrence: None)
  Receive Date: 20061228
  Receipt Date: 20060824
  Transmission Date: 20070319
  Serious: No
  Sender: FDA-Public Use
  Company Number: US-GLAXOSMITHKLINE-A0618014A

PATIENT
  Age: 82 Year

DRUGS (4)
  1. FLONASE [Suspect]
     Route: 045
     Dates: start: 20050101
  2. ADVAIR DISKUS 100/50 [Concomitant]
  3. CLARITIN [Concomitant]
  4. MUCINEX [Concomitant]

REACTIONS (3)
  - COUGH [None]
  - INCORRECT DOSE ADMINISTERED [None]
  - MULTIPLE ALLERGIES [None]
